FAERS Safety Report 14097949 (Version 1)
Quarter: 2017Q4

REPORT INFORMATION
  Report Type: Report from Study
  Country: GB (occurrence: GB)
  Receive Date: 20171017
  Receipt Date: 20171017
  Transmission Date: 20180321
  Serious: Yes (Other)
  Sender: FDA-Public Use
  Company Number: GB-ROCHE-2004888

PATIENT
  Sex: Female

DRUGS (1)
  1. ROACTEMRA [Suspect]
     Active Substance: TOCILIZUMAB
     Indication: RHEUMATOID ARTHRITIS
     Route: 058
     Dates: start: 20170315

REACTIONS (6)
  - Gait inability [Unknown]
  - Suicidal ideation [Unknown]
  - Alopecia [Unknown]
  - Arthralgia [Unknown]
  - Joint injury [Unknown]
  - Pain [Unknown]
